APPROVED DRUG PRODUCT: EPINEPHRINE
Active Ingredient: EPINEPHRINE
Strength: 1MG/ML (1MG/ML)
Dosage Form/Route: SOLUTION;INTRAVENOUS, INTRAOCULAR, INTRAMUSCULAR, SUBCUTANEOUS
Application: A218144 | Product #001 | TE Code: AP
Applicant: GLAND PHARMA LTD
Approved: Jun 3, 2025 | RLD: No | RS: No | Type: RX